FAERS Safety Report 5491173-0 (Version None)
Quarter: 2007Q4

REPORT INFORMATION
  Report Type: 
  Country: None (occurrence: None)
  Receive Date: 20071019
  Receipt Date: 20071012
  Transmission Date: 20080405
  Serious: Yes (Hospitalization)
  Sender: FDA-Public Use
  Company Number: JP-ABBOTT-07P-087-0416887-00

PATIENT
  Sex: Male

DRUGS (6)
  1. KLARICID [Suspect]
     Indication: PNEUMONIA
     Dosage: PEG TUBE
     Dates: start: 20070904, end: 20070908
  2. AZULENE SODIUM SULFONATE [Concomitant]
     Indication: GASTRITIS
     Dates: start: 20050810, end: 20070908
  3. FAMOTIDINE [Concomitant]
     Indication: GASTRITIS
     Dates: start: 20050810, end: 20070908
  4. MAGNESIUM OXIDE [Concomitant]
     Indication: CONSTIPATION
     Dates: start: 20051101, end: 20070908
  5. DAIKEN-CHU-TO [Concomitant]
     Indication: CONSTIPATION
     Dates: start: 20070314, end: 20070908
  6. SULPERAZON [Concomitant]
     Indication: DRUG USE FOR UNKNOWN INDICATION
     Route: 042
     Dates: end: 20070904

REACTIONS (3)
  - BLOOD UREA INCREASED [None]
  - GENERALISED OEDEMA [None]
  - URINE OUTPUT DECREASED [None]
